FAERS Safety Report 16994287 (Version 2)
Quarter: 2020Q4

REPORT INFORMATION
  Report Type: Report from Study
  Country: BR (occurrence: BR)
  Receive Date: 20191105
  Receipt Date: 20201120
  Transmission Date: 20210113
  Serious: Yes (Other)
  Sender: FDA-Public Use
  Company Number: NVSC2019BR019627

PATIENT
  Sex: Female

DRUGS (1)
  1. GILENYA [Suspect]
     Active Substance: FINGOLIMOD HYDROCHLORIDE
     Indication: MULTIPLE SCLEROSIS
     Dosage: UNK
     Route: 065
     Dates: start: 201707

REACTIONS (12)
  - Fall [Unknown]
  - Loss of consciousness [Unknown]
  - Flatulence [Unknown]
  - Head injury [Unknown]
  - Visual impairment [Unknown]
  - Face injury [Unknown]
  - Injury corneal [Unknown]
  - Ill-defined disorder [Unknown]
  - Urinary incontinence [Unknown]
  - Memory impairment [Unknown]
  - Corneal graft rejection [Unknown]
  - Syncope [Unknown]

NARRATIVE: CASE EVENT DATE: 2019
